FAERS Safety Report 8877669 (Version 1)
Quarter: 2012Q4

REPORT INFORMATION
  Report Type: 
  Country: JP (occurrence: JP)
  Receive Date: 20121024
  Receipt Date: 20121024
  Transmission Date: 20130627
  Serious: Yes (Death)
  Sender: FDA-Public Use
  Company Number: JP-ASTELLAS-2012JP009939

PATIENT
  Age: 3 Year
  Sex: Male

DRUGS (5)
  1. PROGRAF [Suspect]
     Indication: IMMUNOSUPPRESSANT DRUG THERAPY
     Route: 065
  2. METHYLPREDNISOLONE [Concomitant]
     Indication: IMMUNOSUPPRESSANT DRUG THERAPY
     Dosage: 1 mg/kg, Unknown/D
     Route: 065
  3. METHYLPREDNISOLONE [Concomitant]
     Dosage: 0.5 mg/kg, Unknown/D
     Route: 065
  4. PREDNISOLONE [Concomitant]
     Indication: IMMUNOSUPPRESSANT DRUG THERAPY
     Dosage: 0.3 mg/kg, Unknown/D
     Route: 048
  5. PREDNISOLONE [Concomitant]
     Dosage: 0.1 mg/kg, Unknown/D
     Route: 048

REACTIONS (1)
  - Sepsis [Fatal]
